FAERS Safety Report 10050513 (Version 1)
Quarter: 2014Q2

REPORT INFORMATION
  Report Type: Spontaneous
  Country: US (occurrence: US)
  Receive Date: 20140401
  Receipt Date: 20140401
  Transmission Date: 20141212
  Serious: No
  Sender: FDA-Public Use
  Company Number: US-ASTRAZENECA-2013SE81832

PATIENT
  Age: 70 Year
  Sex: Female
  Weight: 49.9 kg

DRUGS (2)
  1. NEXIUM [Suspect]
     Indication: GASTROOESOPHAGEAL REFLUX DISEASE
     Route: 048
  2. CENTRUMSILVER MULTIVITAMINS [Suspect]
     Dosage: DAILY
     Route: 048

REACTIONS (4)
  - Choking [Unknown]
  - Throat irritation [Unknown]
  - Oesophagitis [Recovering/Resolving]
  - Drug effect incomplete [Unknown]
